FAERS Safety Report 9679482 (Version 1)
Quarter: 2013Q4

REPORT INFORMATION
  Report Type: Spontaneous
  Country: US (occurrence: US)
  Receive Date: 20131109
  Receipt Date: 20131109
  Transmission Date: 20140711
  Serious: No
  Sender: FDA-Public Use
  Company Number: US-SANOFI-AVENTIS-2013SA055112

PATIENT
  Age: 62 Year
  Sex: Female

DRUGS (5)
  1. ALLEGRA-D, 24 HR [Suspect]
     Indication: HYPERSENSITIVITY
     Route: 048
  2. ALLEGRA-D, 24 HR [Suspect]
     Indication: NASAL CONGESTION
     Route: 048
  3. ALL OTHER THERAPEUTIC PRODUCTS [Concomitant]
  4. ALL OTHER THERAPEUTIC PRODUCTS [Concomitant]
  5. POTASSIUM [Concomitant]

REACTIONS (4)
  - Somnolence [Not Recovered/Not Resolved]
  - Sinusitis [Unknown]
  - Paranasal sinus hypersecretion [Unknown]
  - Insomnia [Recovered/Resolved]
